FAERS Safety Report 13893351 (Version 1)
Quarter: 2017Q3

REPORT INFORMATION
  Report Type: Spontaneous
  Country: US (occurrence: US)
  Receive Date: 20170822
  Receipt Date: 20170822
  Transmission Date: 20171127
  Serious: Yes (Hospitalization, Other)
  Sender: FDA-Public Use
  Company Number: US-ROCHE-734671

PATIENT
  Age: 49 Year
  Sex: Female
  Weight: 80.3 kg

DRUGS (1)
  1. ACTEMRA [Suspect]
     Active Substance: TOCILIZUMAB
     Indication: RHEUMATOID ARTHRITIS
     Dosage: ON 16 AUG 2010, PATIENT RECEIVED DOSE OF 80, FORM: INFUSION
     Route: 042
     Dates: start: 20100615, end: 20100816

REACTIONS (2)
  - Abdominal pain lower [Unknown]
  - Enteritis [Recovered/Resolved]

NARRATIVE: CASE EVENT DATE: 20100816
